FAERS Safety Report 13445529 (Version 1)
Quarter: 2017Q2

REPORT INFORMATION
  Report Type: Spontaneous
  Country: US (occurrence: US)
  Receive Date: 20170415
  Receipt Date: 20170415
  Transmission Date: 20170830
  Serious: No
  Sender: FDA-Public Use
  Company Number: US-BION-005807

PATIENT
  Age: 31 Year
  Sex: Male
  Weight: 54.43 kg

DRUGS (1)
  1. ALEVE [Suspect]
     Active Substance: NAPROXEN SODIUM
     Indication: HEADACHE
     Dosage: 2 LIQUID GELS AT 9A M ON 01-DEC-2016 AND TOOK ANOTHER 2 LIQUID GELS AT 4 PM ON 01-DEC-2016
     Route: 048
     Dates: start: 20161201, end: 20161201

REACTIONS (3)
  - Incorrect dose administered [Not Recovered/Not Resolved]
  - Inappropriate schedule of drug administration [Not Recovered/Not Resolved]
  - Drug ineffective [Not Recovered/Not Resolved]

NARRATIVE: CASE EVENT DATE: 20161201
